FAERS Safety Report 18454792 (Version 1)
Quarter: 2020Q4

REPORT INFORMATION
  Report Type: Not Available
  Country: None (occurrence: None)
  Receive Date: 20201102
  Receipt Date: 20201102
  Transmission Date: 20210114
  Serious: Yes (Life-Threatening, Hospitalization, Other)
  Sender: FDA-Public Use
  Company Number: US-AKORN-155252

PATIENT
  Age: 61 Year
  Sex: Female

DRUGS (1)
  1. PHENYLEPHRINE HCL OPHTHALMIC SOLUTION [Suspect]
     Active Substance: PHENYLEPHRINE HYDROCHLORIDE

REACTIONS (1)
  - Posterior reversible encephalopathy syndrome [Unknown]
